FAERS Safety Report 19706950 (Version 2)
Quarter: 2022Q2

REPORT INFORMATION
  Report Type: Other
  Country: CA (occurrence: CA)
  Receive Date: 20210817
  Receipt Date: 20220608
  Transmission Date: 20220721
  Serious: Yes (Other)
  Sender: FDA-Public Use
  Company Number: CA-APOTEX-2021AP031985

PATIENT
  Age: 23 Year
  Sex: Female

DRUGS (3)
  1. DIPHENHYDRAMINE [Suspect]
     Active Substance: DIPHENHYDRAMINE
     Indication: Product used for unknown indication
     Dosage: UNK
     Route: 065
  2. OCRELIZUMAB [Suspect]
     Active Substance: OCRELIZUMAB
     Indication: Relapsing-remitting multiple sclerosis
     Dosage: 300 MILLIGRAM
     Route: 042
  3. REBIF [Suspect]
     Active Substance: INTERFERON BETA-1A
     Indication: Product used for unknown indication
     Dosage: UNK
     Route: 058

REACTIONS (10)
  - Asthenia [Recovered/Resolved]
  - Hypoaesthesia [Recovered/Resolved]
  - Illness [Unknown]
  - Infusion related reaction [Recovered/Resolved]
  - Panic attack [Recovered/Resolved]
  - Malaise [Recovered/Resolved]
  - Syncope [Recovered/Resolved]
  - Dizziness [Recovered/Resolved]
  - Somnolence [Recovered/Resolved]
  - Drug ineffective [Recovered/Resolved]
